FAERS Safety Report 15554677 (Version 3)
Quarter: 2018Q4

REPORT INFORMATION
  Report Type: Report from Study
  Country: FR (occurrence: FR)
  Receive Date: 20181026
  Receipt Date: 20181115
  Transmission Date: 20190205
  Serious: Yes (Death, Other)
  Sender: FDA-Public Use
  Company Number: FR-JAZZ-2018-FR-015616

PATIENT

DRUGS (2)
  1. DEFITELIO [Suspect]
     Active Substance: DEFIBROTIDE SODIUM
     Dosage: 40 MG/KG, QD
     Route: 042
     Dates: start: 20180803, end: 20180806
  2. DEFITELIO [Suspect]
     Active Substance: DEFIBROTIDE SODIUM
     Indication: VENOOCCLUSIVE DISEASE
     Dosage: 25 MG/KG, QD
     Route: 042
     Dates: start: 20180801, end: 20180802

REACTIONS (7)
  - Pulmonary haemorrhage [Fatal]
  - Pulmonary fibrosis [Fatal]
  - Cardiac failure [Unknown]
  - Candida infection [Unknown]
  - Staphylococcal infection [Unknown]
  - Pneumothorax [Fatal]
  - Respiratory failure [Fatal]

NARRATIVE: CASE EVENT DATE: 20180806
